FAERS Safety Report 6065489-3 (Version None)
Quarter: 2009Q1

REPORT INFORMATION
  Report Type: 
  Country: None (occurrence: None)
  Receive Date: 20090130
  Receipt Date: 20090122
  Transmission Date: 20090719
  Serious: Yes (Death, Hospitalization, Other)
  Sender: FDA-Public Use
  Company Number: 2009AL000408

PATIENT

DRUGS (2)
  1. PROPYLTHIOURACIL TAB [Suspect]
     Indication: HYPERTHYROIDISM
  2. IMIDAZOLE DERIVATIVES [Concomitant]

REACTIONS (7)
  - ACUTE MYOCARDIAL INFARCTION [None]
  - ACUTE TONSILLITIS [None]
  - AGRANULOCYTOSIS [None]
  - CARDIO-RESPIRATORY ARREST [None]
  - DISSEMINATED INTRAVASCULAR COAGULATION [None]
  - PHARYNGITIS [None]
  - SEPSIS [None]
